FAERS Safety Report 23590220 (Version 1)
Quarter: 2024Q1

REPORT INFORMATION
  Report Type: Spontaneous
  Country: US (occurrence: None)
  Receive Date: 20240304
  Receipt Date: 20240304
  Transmission Date: 20240410
  Serious: No
  Sender: FDA-Public Use
  Company Number: 2024A043128

PATIENT
  Sex: Male

DRUGS (1)
  1. FARXIGA [Suspect]
     Active Substance: DAPAGLIFLOZIN PROPANEDIOL
     Route: 048
     Dates: start: 202311

REACTIONS (4)
  - Dyspepsia [Not Recovered/Not Resolved]
  - Vomiting [Unknown]
  - Eructation [Not Recovered/Not Resolved]
  - Feeling cold [Unknown]
